FAERS Safety Report 5670699-0 (Version None)
Quarter: 2008Q1

REPORT INFORMATION
  Report Type: 
  Country: None (occurrence: None)
  Receive Date: 20080312
  Receipt Date: 20080305
  Transmission Date: 20080703
  Serious: Yes (Other)
  Sender: FDA-Public Use
  Company Number: CHPA2008US04093

PATIENT
  Sex: Male

DRUGS (1)
  1. BENEFIBER W/WHEAT DEXTRIN (NCH)(WHEAT DEXTRIN) CHEWABLE TABLET [Suspect]
     Indication: NUTRITIONAL SUPPORT
     Dosage: HALF A CHEWABLE, QD, ORAL
     Route: 048

REACTIONS (2)
  - BOWEL MOVEMENT IRREGULARITY [None]
  - HAEMATOCHEZIA [None]
